FAERS Safety Report 20492036 (Version 2)
Quarter: 2022Q1

REPORT INFORMATION
  Report Type: Spontaneous
  Country: DE (occurrence: DE)
  Receive Date: 20220218
  Receipt Date: 20220220
  Transmission Date: 20220423
  Serious: Yes (Other)
  Sender: FDA-Public Use
  Company Number: DE-BIOGEN-2022BI01096309

PATIENT
  Age: 60 Year
  Sex: Male

DRUGS (2)
  1. TYSABRI [Suspect]
     Active Substance: NATALIZUMAB
     Indication: Multiple sclerosis
     Dosage: FOR 2-3 MONTHS NOW ALSO IN SUBCUTANEOUS ADMINISTRATION
     Route: 058
     Dates: start: 202112
  2. TYSABRI [Suspect]
     Active Substance: NATALIZUMAB
     Indication: Multiple sclerosis
     Route: 042
     Dates: end: 202111

REACTIONS (2)
  - Prostate cancer [Not Recovered/Not Resolved]
  - Off label use [Not Recovered/Not Resolved]
